FAERS Safety Report 4294968-4 (Version None)
Quarter: 2004Q1

REPORT INFORMATION
  Report Type: 
  Country: None (occurrence: None)
  Receive Date: 20040216
  Receipt Date: 20030320
  Transmission Date: 20041129
  Serious: No
  Sender: FDA-Public Use
  Company Number: US-GLAXOSMITHKLINE-A0401221A

PATIENT
  Age: 21 Year
  Sex: Female

DRUGS (4)
  1. LAMICTAL [Suspect]
     Indication: COMPLEX PARTIAL SEIZURES
     Route: 048
     Dates: start: 20030221, end: 20030306
  2. DILANTIN [Concomitant]
  3. TOPAMAX [Concomitant]
  4. BIRTH CONTROL PILLS [Concomitant]

REACTIONS (1)
  - RASH [None]
